FAERS Safety Report 8399938 (Version 5)
Quarter: 2014Q1

REPORT INFORMATION
  Report Type: Spontaneous
  Country: US (occurrence: None)
  Receive Date: 20120131
  Receipt Date: 20140127
  Transmission Date: 20141002
  Serious: Yes (Other)
  Sender: FDA-Public Use
  Company Number: AUR-APL-2012-00682

PATIENT
  Sex: Female

DRUGS (2)
  1. VENLAFAXINE [Suspect]
     Indication: BIPOLAR DISORDER
     Dosage: UNKNOWN
  2. EFFEXOR XR [Suspect]
     Indication: BIPOLAR DISORDER
     Dosage: 75 MG (37.5 MG, 2 IN 1 D)
     Route: 048

REACTIONS (11)
  - Skin discolouration [None]
  - Cardiac disorder [None]
  - Gastrointestinal disorder [None]
  - Renal failure [None]
  - Hepatic failure [None]
  - Psoriasis [None]
  - Mental disorder [None]
  - Product substitution issue [None]
  - Drug dose omission [None]
  - Feeling abnormal [None]
  - Dysgraphia [None]
